FAERS Safety Report 14782248 (Version 3)
Quarter: 2019Q1

REPORT INFORMATION
  Report Type: Report from Study
  Country: BR (occurrence: BR)
  Receive Date: 20180420
  Receipt Date: 20190219
  Transmission Date: 20190417
  Serious: Yes (Other)
  Sender: FDA-Public Use
  Company Number: BR-ROCHE-2109986

PATIENT
  Age: 55 Year
  Sex: Female
  Weight: 78 kg

DRUGS (7)
  1. XOLAIR [Suspect]
     Active Substance: OMALIZUMAB
     Route: 058
     Dates: start: 20180329
  2. XOLAIR [Suspect]
     Active Substance: OMALIZUMAB
     Indication: ASTHMA
     Dosage: STARTED APPROXIMATELY 2 YEARS AGO
     Route: 058
  3. ALENIA (BRAZIL) [Concomitant]
     Active Substance: BUDESONIDE\FORMOTEROL FUMARATE
     Indication: ASTHMA
     Dosage: 5 DF (2 IN THE MORNING, ONE IN NIGHT, 2 IN THE AFTERNOON), TID
     Route: 055
  4. XOLAIR [Suspect]
     Active Substance: OMALIZUMAB
     Dosage: IN OCT, YEAR UNKNOWN
     Route: 058
  5. XOLAIR [Suspect]
     Active Substance: OMALIZUMAB
     Route: 058
     Dates: start: 201802
  6. SALBUTAMOL [Concomitant]
     Active Substance: ALBUTEROL
     Indication: ASTHMA
     Dosage: ONE IN MORNING, AFTERNOON AND NIGHT, TID
     Route: 055
  7. XOLAIR [Suspect]
     Active Substance: OMALIZUMAB
     Route: 058
     Dates: start: 20180830, end: 20180830

REACTIONS (9)
  - Movement disorder [Recovering/Resolving]
  - Wound decomposition [Recovered/Resolved]
  - Wound dehiscence [Recovered/Resolved]
  - Injection site discolouration [Not Recovered/Not Resolved]
  - Pain in extremity [Not Recovered/Not Resolved]
  - Pyrexia [Recovered/Resolved]
  - Ear injury [Recovered/Resolved]
  - Weight increased [Not Recovered/Not Resolved]
  - Nasal injury [Recovering/Resolving]

NARRATIVE: CASE EVENT DATE: 201809
